FAERS Safety Report 4755126-X (Version None)
Quarter: 2005Q3

REPORT INFORMATION
  Report Type: 
  Country: None (occurrence: None)
  Receive Date: 20050829
  Receipt Date: 20050823
  Transmission Date: 20060218
  Serious: Yes (Death)
  Sender: FDA-Public Use
  Company Number: US-JNJFOC-20050700130

PATIENT
  Sex: Female
  Weight: 61.24 kg

DRUGS (4)
  1. REMICADE [Suspect]
     Indication: RHEUMATOID ARTHRITIS
     Route: 042
  2. SULFASALAZINE [Concomitant]
     Dosage: DURATION ^} 6 MONTHS^
  3. PREDNISON [Concomitant]
     Dosage: DURATION ^} 6 MONTHS^
  4. ANALGESICS [Concomitant]
     Dosage: DURATION ^} 6 MONTHS^

REACTIONS (1)
  - DEATH [None]
